FAERS Safety Report 5923569-4 (Version None)
Quarter: 2008Q4

REPORT INFORMATION
  Report Type: 
  Country: None (occurrence: None)
  Receive Date: 20081020
  Receipt Date: 20081013
  Transmission Date: 20090506
  Serious: Yes (Other)
  Sender: FDA-Public Use
  Company Number: PHHY2008NO08644

PATIENT
  Sex: Female

DRUGS (3)
  1. EXFORGE [Suspect]
     Dosage: 160MG/5MG
     Route: 048
  2. EXFORGE [Suspect]
     Dosage: 160 MG/10 MG
     Route: 048
  3. DIURETICS [Concomitant]

REACTIONS (3)
  - CARDIAC DISORDER [None]
  - DYSPNOEA [None]
  - OEDEMA [None]
